FAERS Safety Report 20290778 (Version 1)
Quarter: 2022Q1

REPORT INFORMATION
  Report Type: Spontaneous
  Country: US (occurrence: None)
  Receive Date: 20220103
  Receipt Date: 20220103
  Transmission Date: 20220424
  Serious: No
  Sender: FDA-Public Use
  Company Number: None

PATIENT
  Sex: Male

DRUGS (1)
  1. ZOLINZA [Suspect]
     Active Substance: VORINOSTAT
     Indication: Meningeal neoplasm
     Dosage: 400MG DAILY BY MOUTH?
     Route: 048
     Dates: start: 202111

REACTIONS (3)
  - Panic attack [None]
  - Asthenia [None]
  - Fatigue [None]
